FAERS Safety Report 9965697 (Version 1)
Quarter: 2014Q1

REPORT INFORMATION
  Report Type: Spontaneous
  Country: US (occurrence: US)
  Receive Date: 20140305
  Receipt Date: 20140305
  Transmission Date: 20141002
  Serious: Yes (Other)
  Sender: FDA-Public Use
  Company Number: US-ABBVIE-13P-163-1127270-00

PATIENT
  Sex: Female
  Weight: 22.7 kg

DRUGS (6)
  1. HUMIRA [Suspect]
     Indication: UVEITIS
     Dates: start: 201104, end: 201305
  2. HUMIRA [Suspect]
     Dates: start: 201305, end: 201306
  3. HUMIRA [Suspect]
     Dates: start: 201306
  4. METHOTREXATE [Suspect]
     Indication: UVEITIS
     Dates: end: 2012
  5. UNKNOWN MEDICATION [Concomitant]
     Indication: GLAUCOMA
  6. UNKNOWN MEDICATION [Concomitant]
     Indication: PROPHYLAXIS

REACTIONS (5)
  - Pyrexia [Recovered/Resolved]
  - Drug ineffective [Recovered/Resolved]
  - Eye movement disorder [Recovered/Resolved]
  - Tremor [Recovered/Resolved]
  - Off label use [Not Recovered/Not Resolved]
